FAERS Safety Report 18607328 (Version 2)
Quarter: 2022Q4

REPORT INFORMATION
  Report Type: Report from Study
  Country: CZ (occurrence: CZ)
  Receive Date: 20201211
  Receipt Date: 20221003
  Transmission Date: 20230112
  Serious: Yes (Death, Hospitalization)
  Sender: FDA-Public Use
  Company Number: CZ-OTSUKA-2020_024225AA

PATIENT
  Weight: 74 kg

DRUGS (9)
  1. CEDAZURIDINE\DECITABINE [Suspect]
     Active Substance: CEDAZURIDINE\DECITABINE
     Indication: Acute myeloid leukaemia
     Dosage: 135 MG (100 MG CEDAZURIDINE AND 35 MG DECITABINE), QD FOR DAYS 1 TO 5 OF A 28 DAYS CYCLE
     Route: 065
     Dates: start: 20200914
  2. DECITABINE [Suspect]
     Active Substance: DECITABINE
     Indication: Acute myeloid leukaemia
     Dosage: 36 MG
     Route: 042
     Dates: start: 20201019
  3. CALCIUM CARBONATE [Concomitant]
     Active Substance: CALCIUM CARBONATE
     Indication: Osteoporosis
     Dosage: UNK
     Route: 048
     Dates: start: 20160115
  4. VIGANTOL [Concomitant]
     Indication: Osteoporosis
     Dosage: UNK
     Route: 048
     Dates: start: 20160115, end: 20201018
  5. AMILORIDE HYDROCHLORIDE\HYDROCHLOROTHIAZIDE [Concomitant]
     Active Substance: AMILORIDE HYDROCHLORIDE\HYDROCHLOROTHIAZIDE
     Indication: Hypertension
     Dosage: UNK
     Route: 048
     Dates: start: 20040115, end: 20201007
  6. PROPAFENONE [Concomitant]
     Active Substance: PROPAFENONE
     Indication: Atrial fibrillation
     Dosage: UNK
     Route: 048
     Dates: start: 20170115
  7. RISEDRONATE SODIUM [Concomitant]
     Active Substance: RISEDRONATE SODIUM
     Indication: Osteoporosis
     Dosage: UNK
     Route: 048
     Dates: start: 20160115, end: 20201018
  8. LYRICA [Concomitant]
     Active Substance: PREGABALIN
     Indication: Radiculopathy
     Dosage: UNK
     Route: 048
     Dates: start: 20190115
  9. AMOXICILLIN\CLAVULANIC ACID [Concomitant]
     Active Substance: AMOXICILLIN\CLAVULANIC ACID
     Indication: Pneumonia
     Dosage: UNK
     Route: 048
     Dates: start: 20201002, end: 20201005

REACTIONS (1)
  - Pneumonia [Fatal]

NARRATIVE: CASE EVENT DATE: 20201005
